FAERS Safety Report 7014726 (Version 2)
Quarter: 2020Q3

REPORT INFORMATION
  Report Type: Report from Study
  Country: US (occurrence: US)
  Receive Date: 20090609
  Receipt Date: 20090707
  Transmission Date: 20201105
  Serious: Yes (Other)
  Sender: FDA-Public Use
  Company Number: US-ROCHE-636549

PATIENT
  Age: 90 Year
  Sex: Female

DRUGS (3)
  1. NITROGLYCERIN. [Concomitant]
     Active Substance: NITROGLYCERIN
     Dosage: DRUG REPORTED AS NITROFOR, DOSE: 1 DAILY
  2. VESICARE [Concomitant]
     Active Substance: SOLIFENACIN SUCCINATE
     Dosage: DOSE: 1 DAILY
  3. IBANDRONIC ACID. [Suspect]
     Active Substance: IBANDRONIC ACID
     Indication: OSTEOPOROSIS
     Dosage: RECENT DOSE RECEIVED ON 10 MAY 2009
     Route: 065
     Dates: start: 200806

REACTIONS (3)
  - Haemorrhoid operation [Unknown]
  - Kidney infection [Unknown]
  - Abdominal discomfort [Recovered/Resolved]

NARRATIVE: CASE EVENT DATE: 20090101
